FAERS Safety Report 10289352 (Version 2)
Quarter: 2014Q4

REPORT INFORMATION
  Report Type: Report from Study
  Country: BR (occurrence: BR)
  Receive Date: 20140710
  Receipt Date: 20141002
  Transmission Date: 20150528
  Serious: Yes (Hospitalization)
  Sender: FDA-Public Use
  Company Number: BR-ROCHE-1431653

PATIENT
  Sex: Female
  Weight: 80 kg

DRUGS (3)
  1. ACTEMRA [Suspect]
     Active Substance: TOCILIZUMAB
     Indication: RHEUMATOID ARTHRITIS
     Dosage: LAST INFORMED DOSE RECEIVED: 17/DEC/2013
     Route: 042
     Dates: start: 20130702
  2. OMEGA 3 [Concomitant]
     Active Substance: OMEGA-3 FATTY ACIDS
     Route: 065
  3. LOSARTAN [Concomitant]
     Active Substance: LOSARTAN
     Indication: HYPERTENSION
     Route: 065

REACTIONS (4)
  - Abdominal hernia [Unknown]
  - Varicose vein [Unknown]
  - Lipectomy [Unknown]
  - Cholelithiasis [Unknown]
